FAERS Safety Report 8941447 (Version 2)
Quarter: 2014Q1

REPORT INFORMATION
  Report Type: Report from Study
  Country: US (occurrence: US)
  Receive Date: 20121203
  Receipt Date: 20140130
  Transmission Date: 20141002
  Serious: Yes (Hospitalization)
  Sender: FDA-Public Use
  Company Number: US-ROCHE-1158449

PATIENT
  Age: 44 Year
  Sex: Female
  Weight: 99.79 kg

DRUGS (5)
  1. TRASTUZUMAB [Suspect]
     Indication: BREAST CANCER
     Dosage: LOADING DOSE.
     Route: 042
     Dates: start: 20121101, end: 20121101
  2. TRASTUZUMAB [Suspect]
     Dosage: MAINTENANCE DOSE, LAST DOSE ADMINISTERD PRIOR TO SAE ON 01/NOV/2012.
     Route: 042
  3. CARBOPLATIN [Suspect]
     Indication: BREAST CANCER
     Dosage: FORM: 6AUC
     Route: 042
     Dates: start: 20121101
  4. DOCETAXEL [Suspect]
     Indication: BREAST CANCER
     Route: 065
  5. PERTUZUMAB [Suspect]
     Indication: BREAST CANCER
     Dosage: LAST DOSE ADMINISTERD PRIOR TO SAE WAS ON DATE 01/NOV/2012.
     Route: 042
     Dates: start: 20121101

REACTIONS (1)
  - Staphylococcal skin infection [Recovered/Resolved]
